FAERS Safety Report 6709458-6 (Version None)
Quarter: 2010Q2

REPORT INFORMATION
  Report Type: 
  Country: None (occurrence: None)
  Receive Date: 20100428
  Receipt Date: 20090702
  Transmission Date: 20101027
  Serious: No
  Sender: FDA-Public Use
  Company Number: 2009-00319

PATIENT
  Sex: Male

DRUGS (1)
  1. ALL ZICAM PRODUCTS [Suspect]
     Dosage: 2 YEARS AGO

REACTIONS (2)
  - ANOSMIA [None]
  - BURNING SENSATION [None]
